FAERS Safety Report 18313231 (Version 2)
Quarter: 2020Q4

REPORT INFORMATION
  Report Type: Spontaneous
  Country: JP (occurrence: JP)
  Receive Date: 20200925
  Receipt Date: 20201023
  Transmission Date: 20210113
  Serious: Yes (Other)
  Sender: FDA-Public Use
  Company Number: JP-PFIZER INC-2020371829

PATIENT

DRUGS (2)
  1. GABAPEN [Suspect]
     Active Substance: GABAPENTIN
     Route: 048
  2. TEGRETOL [Suspect]
     Active Substance: CARBAMAZEPINE
     Route: 048

REACTIONS (2)
  - Blood pressure increased [Recovered/Resolved]
  - Bradycardia [Recovered/Resolved]
